FAERS Safety Report 19548128 (Version 1)
Quarter: 2021Q3

REPORT INFORMATION
  Report Type: Spontaneous
  Country: US (occurrence: US)
  Receive Date: 20210714
  Receipt Date: 20210714
  Transmission Date: 20211014
  Serious: Yes (Hospitalization)
  Sender: FDA-Public Use
  Company Number: None

PATIENT
  Age: 62 Year
  Sex: Female
  Weight: 87.5 kg

DRUGS (16)
  1. WELLBUTRIN [Concomitant]
     Active Substance: BUPROPION HYDROCHLORIDE
     Dates: start: 20190101
  2. MIRAPEX [Concomitant]
     Active Substance: PRAMIPEXOLE DIHYDROCHLORIDE
     Dates: start: 20180101
  3. TRIAMCINOLONE [Concomitant]
     Active Substance: TRIAMCINOLONE
     Dates: start: 20210629
  4. ADDARAX [Concomitant]
     Dates: start: 20210702
  5. RITUXIMAB. [Suspect]
     Active Substance: RITUXIMAB
     Indication: LYMPHOMA
     Dates: start: 20210702, end: 20210702
  6. VIIBRYD [Concomitant]
     Active Substance: VILAZODONE HYDROCHLORIDE
     Dates: start: 20200101
  7. IBUPROFEN AS NEEDED FOR HEADACHES [Concomitant]
     Dates: start: 20210702
  8. CYCLOPHOSPHAMIDE. [Suspect]
     Active Substance: CYCLOPHOSPHAMIDE
  9. DRISDOL [Concomitant]
     Active Substance: ERGOCALCIFEROL
     Dates: start: 20110101
  10. XYZAL [Concomitant]
     Active Substance: LEVOCETIRIZINE DIHYDROCHLORIDE
     Dates: start: 20210408
  11. PREDNISONE. [Concomitant]
     Active Substance: PREDNISONE
     Dates: start: 20210430
  12. DOXORUBICIN [Suspect]
     Active Substance: DOXORUBICIN
  13. PARSACLISIB (INVESTIGATIONAL STUDY DRUG) [Concomitant]
     Dates: start: 20210430, end: 20210625
  14. PREDNISONE. [Suspect]
     Active Substance: PREDNISONE
  15. BELSOMRA [Concomitant]
     Active Substance: SUVOREXANT
     Dates: start: 20180101
  16. VINCRISTINE [Suspect]
     Active Substance: VINCRISTINE

REACTIONS (8)
  - Tachycardia [None]
  - Infection [None]
  - Nocturia [None]
  - Neutropenia [None]
  - Rash [None]
  - Thrombocytopenia [None]
  - Oropharyngeal pain [None]
  - Fatigue [None]

NARRATIVE: CASE EVENT DATE: 20210713
